FAERS Safety Report 10459239 (Version 4)
Quarter: 2014Q4

REPORT INFORMATION
  Report Type: Spontaneous
  Country: GB (occurrence: GB)
  Receive Date: 20140917
  Receipt Date: 20141007
  Transmission Date: 20150528
  Serious: Yes (Hospitalization, Disabling)
  Sender: FDA-Public Use
  Company Number: GB-B.I. PHARMACEUTICALS,INC./RIDGEFIELD-2014-BI-42663UK

PATIENT
  Age: 57 Year
  Sex: Female

DRUGS (1)
  1. SPIRIVA [Suspect]
     Active Substance: TIOTROPIUM BROMIDE MONOHYDRATE
     Indication: PRODUCT USED FOR UNKNOWN INDICATION
     Route: 055

REACTIONS (5)
  - Coma [Unknown]
  - Foreign body aspiration [Unknown]
  - Cushing^s syndrome [Unknown]
  - Disability [Unknown]
  - Product quality issue [Unknown]
